FAERS Safety Report 6268925-2 (Version None)
Quarter: 2009Q3

REPORT INFORMATION
  Report Type: 
  Country: None (occurrence: None)
  Receive Date: 20090715
  Receipt Date: 20090702
  Transmission Date: 20100115
  Serious: Yes (Hospitalization)
  Sender: FDA-Public Use
  Company Number: US-ELI_LILLY_AND_COMPANY-US200907000972

PATIENT
  Sex: Female
  Weight: 188 kg

DRUGS (27)
  1. DULOXETINE HYDROCHLORIDE [Suspect]
     Indication: CENTRAL PAIN SYNDROME
     Dosage: 30 MG, DAILY (1/D)
     Route: 048
     Dates: start: 20090521
  2. DILTIAZEM HCL [Concomitant]
     Indication: HYPERTENSION
     Dosage: UNK, UNK
     Dates: start: 20060101
  3. METOPROLOL TARTRATE [Concomitant]
     Indication: HYPERTENSION
     Dosage: UNK, UNK
     Dates: start: 20060101
  4. CLONIDINE [Concomitant]
     Indication: HYPERTENSION
     Dates: start: 20020114
  5. LISINOPRIL [Concomitant]
     Indication: HYPERTENSION
     Dates: start: 20060101
  6. IMODIUM [Concomitant]
     Indication: GASTROOESOPHAGEAL REFLUX DISEASE
     Dates: start: 20020114
  7. ZEGERID [Concomitant]
     Indication: GASTROOESOPHAGEAL REFLUX DISEASE
     Dates: start: 20051011
  8. COMPAZINE [Concomitant]
     Indication: GASTROOESOPHAGEAL REFLUX DISEASE
     Dates: start: 20020114
  9. REGLAN [Concomitant]
     Indication: GASTROOESOPHAGEAL REFLUX DISEASE
     Dates: start: 20020114
  10. TRAZODONE [Concomitant]
     Indication: DEPRESSION
     Dates: start: 20081205
  11. PROZAC [Concomitant]
     Dates: start: 20080108
  12. LORAZEPAM [Concomitant]
     Indication: ANXIETY
     Dates: start: 20081205
  13. ADVAIR DISKUS 100/50 [Concomitant]
     Indication: ASTHMA
     Dates: start: 20020114
  14. ALBUTEROL SULFATE [Concomitant]
     Indication: ASTHMA
     Dates: start: 20020114
  15. FLONASE [Concomitant]
     Indication: SEASONAL ALLERGY
     Dates: start: 20020114
  16. VICODIN [Concomitant]
     Indication: PAIN
     Dates: start: 20071213
  17. OXYCODON [Concomitant]
     Indication: PAIN
     Dates: start: 20071001
  18. NEURONTIN [Concomitant]
     Indication: MUSCLE SPASTICITY
     Dates: start: 20071213
  19. COUMADIN [Concomitant]
     Indication: PROPHYLAXIS
     Dates: start: 20050913
  20. AVONEX [Concomitant]
     Indication: MULTIPLE SCLEROSIS
     Dosage: UNK, UNK
     Dates: start: 20050101
  21. KEFLEX /00145501/ [Concomitant]
     Dates: start: 20090201
  22. MINOCIN [Concomitant]
     Dates: start: 20050913
  23. RIFAMPIN [Concomitant]
     Dates: start: 20050913
  24. BOTOX [Concomitant]
     Indication: URINARY INCONTINENCE
     Dates: start: 20090625
  25. WELLBUTRIN [Concomitant]
     Indication: DEPRESSION
     Dates: start: 20000101
  26. MULTI-VITAMIN [Concomitant]
     Dates: start: 20000101
  27. CALCIUM WITH VITAMIN D [Concomitant]
     Dates: start: 20000101

REACTIONS (1)
  - HAEMATURIA [None]
